FAERS Safety Report 16953380 (Version 2)
Quarter: 2019Q4

REPORT INFORMATION
  Report Type: Spontaneous
  Country: US (occurrence: US)
  Receive Date: 20191023
  Receipt Date: 20191122
  Transmission Date: 20200122
  Serious: Yes (Death)
  Sender: FDA-Public Use
  Company Number: US-TAKEDA-2019TUS058198

PATIENT
  Age: 74 Year
  Sex: Male

DRUGS (2)
  1. BRIGATINIB [Suspect]
     Active Substance: BRIGATINIB
     Indication: NEOPLASM MALIGNANT
     Dosage: 90 MILLIGRAM, QD
     Route: 048
     Dates: start: 201910
  2. BRIGATINIB [Suspect]
     Active Substance: BRIGATINIB
     Dosage: 180 MILLIGRAM, QD
     Route: 048
     Dates: start: 201910

REACTIONS (6)
  - Death [Fatal]
  - Musculoskeletal pain [Unknown]
  - Decreased appetite [Unknown]
  - Confusional state [Unknown]
  - Muscle twitching [Unknown]
  - Restlessness [Unknown]

NARRATIVE: CASE EVENT DATE: 20191016
